FAERS Safety Report 12939060 (Version 1)
Quarter: 2016Q4

REPORT INFORMATION
  Report Type: Spontaneous
  Country: US (occurrence: US)
  Receive Date: 20161114
  Receipt Date: 20161114
  Transmission Date: 20170207
  Serious: Yes (Other)
  Sender: FDA-Public Use
  Company Number: None

PATIENT

DRUGS (3)
  1. FENTANYL. [Suspect]
     Active Substance: FENTANYL
  2. FENTANYL. [Suspect]
     Active Substance: FENTANYL
  3. HYDROMORPHONE [Concomitant]
     Active Substance: HYDROMORPHONE

REACTIONS (4)
  - Toxicologic test abnormal [None]
  - Product outer packaging issue [None]
  - Crime [None]
  - Product tampering [None]

NARRATIVE: CASE EVENT DATE: 20161010
